FAERS Safety Report 7781856-1 (Version None)
Quarter: 2011Q3

REPORT INFORMATION
  Report Type: 
  Country: None (occurrence: None)
  Receive Date: 20110927
  Receipt Date: 20110921
  Transmission Date: 20111222
  Serious: Yes (Hospitalization)
  Sender: FDA-Public Use
  Company Number: IT-BRISTOL-MYERS SQUIBB COMPANY-16091399

PATIENT
  Age: 73 Year
  Sex: Male

DRUGS (2)
  1. ACETYLSALICYLIC ACID SRT [Concomitant]
     Route: 048
  2. COUMADIN [Suspect]
     Indication: ATRIAL FIBRILLATION
     Dosage: 1 DF = 1 UNIT
     Dates: start: 20100706, end: 20110728

REACTIONS (2)
  - HAEMARTHROSIS [None]
  - PYOMYOSITIS [None]
